FAERS Safety Report 8268740-4 (Version None)
Quarter: 2012Q2

REPORT INFORMATION
  Report Type: 
  Country: None (occurrence: None)
  Receive Date: 20120409
  Receipt Date: 20120405
  Transmission Date: 20120825
  Serious: Yes (Other)
  Sender: FDA-Public Use
  Company Number: US-MERCK-1204USA00882

PATIENT
  Age: 68 Year
  Sex: Female

DRUGS (6)
  1. FOSAMAX [Suspect]
     Indication: OSTEOPENIA
     Route: 048
  2. BONIVA [Suspect]
     Indication: OSTEOPOROSIS
     Route: 065
  3. FOSAMAX [Suspect]
     Indication: OSTEOPOROSIS
     Route: 048
  4. ACTONEL [Suspect]
     Indication: OSTEOPOROSIS
     Route: 065
  5. ACTONEL [Suspect]
     Indication: OSTEOPENIA
     Route: 065
  6. BONIVA [Suspect]
     Indication: OSTEOPENIA
     Route: 065

REACTIONS (2)
  - FEMUR FRACTURE [None]
  - LOW TURNOVER OSTEOPATHY [None]
